FAERS Safety Report 7932195 (Version 2)
Quarter: 2012Q4

REPORT INFORMATION
  Report Type: 
  Country: US (occurrence: None)
  Receive Date: 20110415
  Receipt Date: 20120910
  Transmission Date: 20130627
  Serious: Yes (Other)
  Sender: FDA-Public Use
  Company Number: AUR-APL-2011-01151

PATIENT
  Age: 10 Year
  Sex: Female

DRUGS (3)
  1. LAMOTRIGINE [Suspect]
     Indication: TONIC-CLONIC SEIZURES
  2. LAMOTRIGINE [Suspect]
     Indication: TONIC-CLONIC SEIZURES
  3. CLONAZEPAM [Concomitant]

REACTIONS (8)
  - Oculogyric crisis [None]
  - Toxicity to various agents [None]
  - Convulsion [None]
  - No therapeutic response [None]
  - Cerebral atrophy [None]
  - Cerebellar atrophy [None]
  - Tremor [None]
  - Irritability [None]
